FAERS Safety Report 10357204 (Version 2)
Quarter: 2014Q4

REPORT INFORMATION
  Report Type: Spontaneous
  Country: DK (occurrence: DE)
  Receive Date: 20140801
  Receipt Date: 20141031
  Transmission Date: 20150528
  Serious: Yes (Hospitalization)
  Sender: FDA-Public Use
  Company Number: DE-FRI-1000069506

PATIENT
  Age: 0 Day
  Sex: Female

DRUGS (5)
  1. VIGANTOLETTEN [Concomitant]
     Active Substance: CHOLECALCIFEROL
  2. VITA VERLAN [Concomitant]
  3. L-THYROXIN [Concomitant]
     Active Substance: LEVOTHYROXINE SODIUM
  4. FERRO SANOL [Concomitant]
     Active Substance: FERROUS SULFATE\GLYCINE
  5. CITALOPRAM [Suspect]
     Active Substance: CITALOPRAM HYDROBROMIDE
     Dosage: 10 MG
     Route: 064
     Dates: end: 20140523

REACTIONS (7)
  - Fatigue [Recovering/Resolving]
  - Respiratory disorder neonatal [Recovered/Resolved]
  - Feeding disorder neonatal [Recovering/Resolving]
  - Weight gain poor [Recovering/Resolving]
  - Foetal exposure during pregnancy [Recovering/Resolving]
  - Microcephaly [Unknown]
  - Exposure during breast feeding [Recovering/Resolving]

NARRATIVE: CASE EVENT DATE: 20140408
